FAERS Safety Report 5590947-5 (Version None)
Quarter: 2007Q4

REPORT INFORMATION
  Report Type: 
  Country: None (occurrence: None)
  Receive Date: 20071214
  Receipt Date: 20070430
  Transmission Date: 20080405
  Serious: Yes (Other)
  Sender: FDA-Public Use
  Company Number: S07-USA-01813-01

PATIENT
  Age: 81 Year
  Sex: Female

DRUGS (1)
  1. NAMENDA [Suspect]
     Indication: DEMENTIA ALZHEIMER'S TYPE
     Dosage: 5 MG QD PO
     Route: 048
     Dates: start: 20070401, end: 20070401

REACTIONS (3)
  - ANOREXIA [None]
  - APHASIA [None]
  - CONSTIPATION [None]
